FAERS Safety Report 20695147 (Version 1)
Quarter: 2022Q2

REPORT INFORMATION
  Report Type: Spontaneous
  Country: US (occurrence: None)
  Receive Date: 20220408
  Receipt Date: 20220408
  Transmission Date: 20220721
  Serious: Yes (Other)
  Sender: FDA-Public Use
  Company Number: None

PATIENT
  Age: 41 Year
  Sex: Female
  Weight: 78.75 kg

DRUGS (4)
  1. PLENVU [Suspect]
     Active Substance: ASCORBIC ACID\POLYETHYLENE GLYCOL 3350\POTASSIUM CHLORIDE\SODIUM ASCORBATE\SODIUM CHLORIDE\SODIUM SU
     Indication: Colonoscopy
     Dosage: OTHER QUANTITY : 2 POUCH;?OTHER FREQUENCY : 12 HOURS;?ORAL
     Route: 048
     Dates: start: 20220330, end: 20220331
  2. NUVARING [Concomitant]
     Active Substance: ETHINYL ESTRADIOL\ETONOGESTREL
  3. BENADRYL [Concomitant]
     Active Substance: DIPHENHYDRAMINE HYDROCHLORIDE
  4. Cortisone Creams [Concomitant]

REACTIONS (5)
  - Urticaria [None]
  - Rash [None]
  - Contusion [None]
  - Scratch [None]
  - Vomiting [None]

NARRATIVE: CASE EVENT DATE: 20220331
